FAERS Safety Report 17048053 (Version 1)
Quarter: 2019Q4

REPORT INFORMATION
  Report Type: Spontaneous
  Country: US (occurrence: US)
  Receive Date: 20191018
  Receipt Date: 20191018
  Transmission Date: 20200122
  Serious: Yes (Hospitalization)
  Sender: FDA-Public Use
  Company Number: None

PATIENT
  Age: 70 Year
  Sex: Female
  Weight: 59.4 kg

DRUGS (7)
  1. XELODA [Concomitant]
     Active Substance: CAPECITABINE
  2. LEUCOVORIN CALCIUM. [Concomitant]
     Active Substance: LEUCOVORIN CALCIUM
  3. XELODA [Suspect]
     Active Substance: CAPECITABINE
  4. ELOXATIN [Suspect]
     Active Substance: OXALIPLATIN
  5. 5-FLUOROURACIL (5-FU) [Suspect]
     Active Substance: FLUOROURACIL
  6. LEUCOVORIN CALCIUM. [Suspect]
     Active Substance: LEUCOVORIN CALCIUM
  7. ELOXATIN [Concomitant]
     Active Substance: OXALIPLATIN

REACTIONS (6)
  - Flatulence [None]
  - Large intestine perforation [None]
  - Female genital tract fistula [None]
  - Large intestinal obstruction [None]
  - Disease progression [None]
  - Abdominal distension [None]

NARRATIVE: CASE EVENT DATE: 20191014
